FAERS Safety Report 25811840 (Version 1)
Quarter: 2025Q3

REPORT INFORMATION
  Report Type: Other
  Country: MD (occurrence: MD)
  Receive Date: 20250917
  Receipt Date: 20250917
  Transmission Date: 20251021
  Serious: Yes (Hospitalization)
  Sender: MACLEODS
  Company Number: MD-MACLEODS PHARMA-MAC2025055208

PATIENT

DRUGS (4)
  1. PYRAZINAMIDE [Suspect]
     Active Substance: PYRAZINAMIDE
     Indication: Pulmonary tuberculosis
     Dosage: 400 MILLIGRAM
     Route: 048
     Dates: start: 20250124, end: 20250213
  2. ISONIAZID [Suspect]
     Active Substance: ISONIAZID
     Indication: Pulmonary tuberculosis
     Dosage: MICRO LABS LIMITED
     Route: 048
     Dates: start: 20250116, end: 20250213
  3. RIFAPENTINE [Suspect]
     Active Substance: RIFAPENTINE
     Indication: Pulmonary tuberculosis
     Dosage: 300 MILLIGRAM (LUPIN LTD)
     Route: 048
     Dates: start: 20250118, end: 20250213
  4. MOXIFLOXACIN HYDROCHLORIDE [Suspect]
     Active Substance: MOXIFLOXACIN HYDROCHLORIDE
     Indication: Pulmonary tuberculosis
     Dosage: MSN LAB PVT LTD
     Route: 048
     Dates: start: 20250117, end: 20250213

REACTIONS (1)
  - Hepatitis [Recovering/Resolving]

NARRATIVE: CASE EVENT DATE: 20250213
